FAERS Safety Report 12823021 (Version 7)
Quarter: 2017Q1

REPORT INFORMATION
  Report Type: Report from Study
  Country: IT (occurrence: IT)
  Receive Date: 20161007
  Receipt Date: 20170307
  Transmission Date: 20170428
  Serious: Yes (Hospitalization, Other)
  Sender: FDA-Public Use
  Company Number: PHHY2016IT135100

PATIENT
  Age: 75 Year
  Sex: Female
  Weight: 49 kg

DRUGS (12)
  1. CARDIRENE [Concomitant]
     Active Substance: ASPIRIN DL-LYSINE
     Indication: PRODUCT USED FOR UNKNOWN INDICATION
     Route: 065
  2. TASIGNA [Suspect]
     Active Substance: NILOTINIB
     Indication: CHRONIC MYELOID LEUKAEMIA
     Dosage: 300 MG, QD
     Route: 048
     Dates: start: 20100815, end: 20160817
  3. PANTOPRAZOLE [Concomitant]
     Active Substance: PANTOPRAZOLE SODIUM
     Indication: PRODUCT USED FOR UNKNOWN INDICATION
     Dosage: 1 DF, (30 MINUTES BEFORE BREAKFAST)
     Route: 065
     Dates: start: 20160819
  4. ATORVASTATIN [Concomitant]
     Active Substance: ATORVASTATIN
     Indication: PRODUCT USED FOR UNKNOWN INDICATION
     Dosage: 1 DF, (AT 10:00 P.M.)
     Route: 065
     Dates: start: 20160829
  5. TRIATEC [Concomitant]
     Active Substance: RAMIPRIL
     Indication: PRODUCT USED FOR UNKNOWN INDICATION
     Route: 065
  6. ASPIRIN. [Concomitant]
     Active Substance: ASPIRIN
     Indication: PRODUCT USED FOR UNKNOWN INDICATION
     Dosage: 1 DF, (AFTER LUNCH)
     Route: 065
     Dates: start: 20160819
  7. BISOPROLOL [Concomitant]
     Active Substance: BISOPROLOL
     Indication: PRODUCT USED FOR UNKNOWN INDICATION
     Dosage: 1 DF, (08:00 P.M)
     Route: 065
     Dates: start: 20160819
  8. KCL [Concomitant]
     Active Substance: POTASSIUM CHLORIDE
     Indication: PRODUCT USED FOR UNKNOWN INDICATION
     Route: 065
  9. HYDROCHLOROTHIAZIDE. [Concomitant]
     Active Substance: HYDROCHLOROTHIAZIDE
     Indication: PRODUCT USED FOR UNKNOWN INDICATION
     Dosage: 1 DF, (08:00 AM), QD
     Route: 065
     Dates: start: 20160829
  10. CLOPIDOGREL [Concomitant]
     Active Substance: CLOPIDOGREL BISULFATE
     Indication: PRODUCT USED FOR UNKNOWN INDICATION
     Dosage: 1 DF, (08.00 A.M)
     Route: 065
     Dates: start: 20160831
  11. RAMIPRIL. [Concomitant]
     Active Substance: RAMIPRIL
     Indication: PRODUCT USED FOR UNKNOWN INDICATION
     Dosage: 1 DF, BID (08.00 A.M.  1 TABLET 08:00 PM)
     Route: 065
     Dates: start: 20160819
  12. AMLODIPINE [Concomitant]
     Active Substance: AMLODIPINE BESYLATE
     Indication: PRODUCT USED FOR UNKNOWN INDICATION
     Dosage: 1 DF, (08:00 A.M.)
     Route: 065
     Dates: start: 20160819

REACTIONS (17)
  - Cerebral artery stenosis [Unknown]
  - Asthenia [Unknown]
  - Apraxia [Recovered/Resolved]
  - Paraesthesia [Unknown]
  - Left ventricular hypertrophy [Not Recovered/Not Resolved]
  - Paresis [Unknown]
  - Paralysis [Recovered/Resolved]
  - Cerebrovascular accident [Recovering/Resolving]
  - Ischaemic stroke [Recovered/Resolved]
  - Hypertension [Unknown]
  - Anxiety [Unknown]
  - Sinus bradycardia [Unknown]
  - Hypercholesterolaemia [Unknown]
  - Hypertensive cardiomyopathy [Unknown]
  - Hypokalaemia [Recovered/Resolved]
  - Carpal tunnel syndrome [Unknown]
  - Sensory loss [Unknown]

NARRATIVE: CASE EVENT DATE: 20151229
